FAERS Safety Report 5337017-9 (Version None)
Quarter: 2007Q2

REPORT INFORMATION
  Report Type: 
  Country: None (occurrence: None)
  Receive Date: 20070523
  Receipt Date: 20070510
  Transmission Date: 20071010
  Serious: Yes (Congenital Anomaly)
  Sender: FDA-Public Use
  Company Number: GXKR2007GB04199

PATIENT
  Sex: Female

DRUGS (1)
  1. METFORMIN HCL [Suspect]
     Dosage: TRANSPLACENTAL
     Route: 064

REACTIONS (7)
  - ATRIAL SEPTAL DEFECT [None]
  - CLEFT LIP [None]
  - CLEFT PALATE [None]
  - DRUG EXPOSURE DURING PREGNANCY [None]
  - MICROCEPHALY [None]
  - POLYDACTYLY [None]
  - VENTRICULAR SEPTAL DEFECT [None]
